FAERS Safety Report 6643115-X (Version None)
Quarter: 2010Q1

REPORT INFORMATION
  Report Type: 
  Country: None (occurrence: None)
  Receive Date: 20100319
  Receipt Date: 20100309
  Transmission Date: 20100710
  Serious: Yes (Hospitalization)
  Sender: FDA-Public Use
  Company Number: AT-ABBOTT-10P-009-0631282-00

PATIENT
  Age: 56 Year
  Sex: Female

DRUGS (2)
  1. DEPAKENE [Suspect]
     Indication: SUICIDE ATTEMPT
     Route: 048
     Dates: start: 20090709, end: 20090709
  2. DEPAKENE [Suspect]
     Indication: INTENTIONAL OVERDOSE

REACTIONS (4)
  - DISTURBANCE IN ATTENTION [None]
  - FATIGUE [None]
  - HEADACHE [None]
  - INTENTIONAL OVERDOSE [None]
